FAERS Safety Report 12650843 (Version 1)
Quarter: 2016Q3

REPORT INFORMATION
  Report Type: Spontaneous
  Country: US (occurrence: None)
  Receive Date: 20160812
  Receipt Date: 20160812
  Transmission Date: 20161109
  Serious: No
  Sender: FDA-Public Use
  Company Number: None

PATIENT
  Age: 68 Year
  Sex: Female
  Weight: 57.61 kg

DRUGS (7)
  1. FOLIC ACID. [Concomitant]
     Active Substance: FOLIC ACID
  2. LISINOPRIL. [Concomitant]
     Active Substance: LISINOPRIL
  3. METHOTREXATE INJECTABLE, 50 2ML [Suspect]
     Active Substance: METHOTREXATE
  4. MOTRIN [Concomitant]
     Active Substance: IBUPROFEN
  5. CALCIUM CITRATE [Concomitant]
     Active Substance: CALCIUM CITRATE
  6. METHOTREXATE. [Concomitant]
     Active Substance: METHOTREXATE
  7. MULTIVITAMIN [Concomitant]
     Active Substance: VITAMINS

REACTIONS (3)
  - Product quality issue [None]
  - Injection site pain [None]
  - Injection site bruising [None]

NARRATIVE: CASE EVENT DATE: 20160804
